FAERS Safety Report 14533961 (Version 3)
Quarter: 2019Q1

REPORT INFORMATION
  Report Type: Spontaneous
  Country: US (occurrence: US)
  Receive Date: 20180215
  Receipt Date: 20190103
  Transmission Date: 20190417
  Serious: No
  Sender: FDA-Public Use
  Company Number: US-PFIZER INC-2018063213

PATIENT
  Age: 8 Year
  Sex: Female

DRUGS (1)
  1. GENOTROPIN MQ [Suspect]
     Active Substance: SOMATROPIN
     Indication: BLOOD GROWTH HORMONE
     Dosage: 1.2 MG, DAILY
     Dates: start: 20141025

REACTIONS (4)
  - Bone density decreased [Unknown]
  - Product dose omission [Unknown]
  - Drug ineffective [Unknown]
  - Thyroxine free decreased [Unknown]
